FAERS Safety Report 5036543-X (Version None)
Quarter: 2006Q2

REPORT INFORMATION
  Report Type: 
  Country: None (occurrence: None)
  Receive Date: 20060626
  Receipt Date: 20060609
  Transmission Date: 20061013
  Serious: Yes (Hospitalization)
  Sender: FDA-Public Use
  Company Number: DSA_28363_2006

PATIENT
  Age: 40 Year
  Sex: Male

DRUGS (5)
  1. TEMESTA [Suspect]
     Dosage: 20 TAB ONCE PO
     Route: 048
     Dates: start: 20060419, end: 20060419
  2. AVLOCARDYL [Suspect]
     Dosage: 1 G ONCE PO
     Route: 048
     Dates: start: 20060419, end: 20060419
  3. AVLOCARDYL [Suspect]
     Dosage: 2.24 G ONCE PO
     Route: 048
     Dates: start: 20060419, end: 20060419
  4. THERALEN [Suspect]
     Dosage: DF UNK PO
     Route: 048
     Dates: start: 20060419, end: 20060419
  5. XANAX [Suspect]
     Dosage: 7.5 MG ONCE PO
     Route: 048
     Dates: start: 20060419, end: 20060419

REACTIONS (5)
  - BLOOD PRESSURE DECREASED [None]
  - CIRCULATORY COLLAPSE [None]
  - COMA [None]
  - MULTIPLE DRUG OVERDOSE INTENTIONAL [None]
  - SUICIDE ATTEMPT [None]
